FAERS Safety Report 23327693 (Version 1)
Quarter: 2023Q4

REPORT INFORMATION
  Report Type: Spontaneous
  Country: ES (occurrence: ES)
  Receive Date: 20231221
  Receipt Date: 20231221
  Transmission Date: 20240110
  Serious: Yes (Other)
  Sender: FDA-Public Use
  Company Number: None

PATIENT
  Age: 43 Year
  Sex: Male

DRUGS (3)
  1. ADALIMUMAB [Suspect]
     Active Substance: ADALIMUMAB\ISOPROPYL ALCOHOL
     Indication: Spinal osteoarthritis
     Dosage: 40.0 MG EVERY 14 DAYS
     Route: 058
     Dates: start: 20210702, end: 20231204
  2. TRAMADOL/PARACETAMOL CINFA 37.5 mg/325 mg EFG film-coated tablets, 60 [Concomitant]
     Indication: Spinal osteoarthritis
     Dosage: 1.0 TABLET EVERY 12 HOUR
     Route: 048
     Dates: start: 20230809
  3. IXIA PLUS 20 mg/12,5 mg Film-coated tablets, 28 tablets [Concomitant]
     Indication: Hypertension
     Dosage: 20.0 MG BREAKFAST
     Route: 048
     Dates: start: 20231130

REACTIONS (1)
  - Renal failure [Unknown]

NARRATIVE: CASE EVENT DATE: 20230718
